FAERS Safety Report 20655227 (Version 4)
Quarter: 2024Q3

REPORT INFORMATION
  Report Type: Report from Study
  Country: US (occurrence: US)
  Receive Date: 20220330
  Receipt Date: 20240925
  Transmission Date: 20241017
  Serious: No
  Sender: KYOWA
  Company Number: US-KYOWAKIRIN-2022BKK004395

PATIENT

DRUGS (1)
  1. BUROSUMAB [Suspect]
     Active Substance: BUROSUMAB
     Indication: Hereditary hypophosphataemic rickets
     Dosage: 70 MG, 1X/4 WEEKS (EVERY FOUR WEEKS
     Route: 058
     Dates: start: 20220312

REACTIONS (5)
  - Vertigo [Not Recovered/Not Resolved]
  - Myalgia [Unknown]
  - Restless legs syndrome [Unknown]
  - Calcinosis [Unknown]
  - Tooth fracture [Unknown]

NARRATIVE: CASE EVENT DATE: 20220301
